FAERS Safety Report 17544671 (Version 2)
Quarter: 2020Q3

REPORT INFORMATION
  Report Type: Spontaneous
  Country: SE (occurrence: SE)
  Receive Date: 20200316
  Receipt Date: 20200825
  Transmission Date: 20201102
  Serious: Yes (Other)
  Sender: FDA-Public Use
  Company Number: SE-MYLANLABS-2020M1026299

PATIENT
  Sex: Female

DRUGS (2)
  1. METOMYLAN [Suspect]
     Active Substance: METOPROLOL SUCCINATE
     Indication: PALPITATIONS
     Dosage: 50 MILLIGRAM
     Dates: start: 2020
  2. METOMYLAN [Suspect]
     Active Substance: METOPROLOL SUCCINATE
     Indication: CARDIAC FAILURE

REACTIONS (1)
  - Drug ineffective [Unknown]
